FAERS Safety Report 11077750 (Version 2)
Quarter: 2015Q2

REPORT INFORMATION
  Report Type: Report from Study
  Country: DE (occurrence: DE)
  Receive Date: 20150430
  Receipt Date: 20150601
  Transmission Date: 20150821
  Serious: Yes (Hospitalization)
  Sender: FDA-Public Use
  Company Number: DE-ROCHE-1569201

PATIENT
  Age: 77 Year
  Sex: Female
  Weight: 78.9 kg

DRUGS (10)
  1. NOVALGIN [Concomitant]
     Active Substance: METAMIZOLE SODIUM
     Indication: BACK PAIN
     Route: 042
     Dates: start: 20150309, end: 20150309
  2. DEXAMETHASONE. [Concomitant]
     Active Substance: DEXAMETHASONE
     Indication: VOMITING
     Dosage: CYCLICAL
     Route: 048
     Dates: start: 20150309
  3. FRESUBIN [Concomitant]
     Active Substance: AMINO ACIDS\DEXTROSE\ELECTROLYTES NOS\SOYBEAN OIL\VITAMINS
     Indication: MUCOSAL INFLAMMATION
     Route: 048
     Dates: start: 20150323
  4. PACLITAXEL. [Concomitant]
     Active Substance: PACLITAXEL
     Indication: BREAST CANCER
     Route: 042
     Dates: start: 20150309
  5. DEXAMETHASONE. [Concomitant]
     Active Substance: DEXAMETHASONE
     Indication: HYPERSENSITIVITY
     Dosage: CYCLICAL
     Route: 042
     Dates: start: 20150309
  6. RANITIDINE [Concomitant]
     Active Substance: RANITIDINE\RANITIDINE HYDROCHLORIDE
     Indication: PROPHYLAXIS AGAINST GASTROINTESTINAL ULCER
     Dosage: CYCLICAL
     Route: 042
     Dates: start: 20150309
  7. FENISTIL (GERMANY) [Concomitant]
     Indication: VOMITING
     Dosage: CYCLICAL
     Route: 042
     Dates: start: 20150309
  8. BEVACIZUMAB [Suspect]
     Active Substance: BEVACIZUMAB
     Indication: BREAST CANCER
     Route: 042
     Dates: start: 20150309
  9. GRANISETRON [Concomitant]
     Active Substance: GRANISETRON
     Indication: HYPERSENSITIVITY
     Dosage: CYCLICAL
     Route: 042
     Dates: start: 20150309
  10. AMPHO MORONAL [Concomitant]
     Indication: MUCOSAL INFLAMMATION
     Route: 048
     Dates: start: 20150323, end: 20150413

REACTIONS (1)
  - General physical health deterioration [Recovered/Resolved]

NARRATIVE: CASE EVENT DATE: 20150323
